FAERS Safety Report 10871208 (Version 1)
Quarter: 2015Q1

REPORT INFORMATION
  Report Type: Spontaneous
  Country: US (occurrence: US)
  Receive Date: 20150226
  Receipt Date: 20150226
  Transmission Date: 20150721
  Serious: No
  Sender: FDA-Public Use
  Company Number: US-009507513-1502USA011099

PATIENT
  Age: 72 Year
  Sex: Female
  Weight: 74.83 kg

DRUGS (1)
  1. CLARITIN [Suspect]
     Active Substance: LORATADINE
     Indication: RHINORRHOEA
     Dosage: 10 MG, QD
     Route: 048
     Dates: start: 20150220, end: 20150221

REACTIONS (2)
  - Inappropriate schedule of drug administration [Unknown]
  - Overdose [Unknown]

NARRATIVE: CASE EVENT DATE: 20150221
